FAERS Safety Report 23857315 (Version 1)
Quarter: 2024Q2

REPORT INFORMATION
  Report Type: Spontaneous
  Country: US (occurrence: None)
  Receive Date: 20240514
  Receipt Date: 20240514
  Transmission Date: 20240716
  Serious: Yes (Death, Other)
  Sender: FDA-Public Use
  Company Number: None

PATIENT
  Age: 57 Year
  Sex: Male

DRUGS (20)
  1. AMBRISENTAN [Suspect]
     Active Substance: AMBRISENTAN
     Indication: Pulmonary hypertension
     Dosage: FREQUENCY : DAILY;?
     Route: 048
     Dates: start: 20191220, end: 20240508
  2. TADALAFIL [Suspect]
     Active Substance: TADALAFIL
  3. FENTANYL [Concomitant]
     Active Substance: FENTANYL\FENTANYL CITRATE
  4. MORPHINE [Concomitant]
     Active Substance: MORPHINE
  5. TYLENOL [Concomitant]
     Active Substance: ACETAMINOPHEN
  6. BISACODYL [Concomitant]
     Active Substance: BISACODYL
  7. GABAPENTIN [Concomitant]
     Active Substance: GABAPENTIN
  8. LISINOPRIL [Concomitant]
     Active Substance: LISINOPRIL
  9. MELATONIN [Concomitant]
     Active Substance: MELATONIN
  10. NARCAN [Concomitant]
     Active Substance: NALOXONE HYDROCHLORIDE
  11. ONDANSETRON [Concomitant]
     Active Substance: ONDANSETRON
  12. OXYCODONE [Concomitant]
     Active Substance: OXYCODONE\OXYCODONE HYDROCHLORIDE
  13. PANTOPRAZOLE [Concomitant]
     Active Substance: PANTOPRAZOLE
  14. MIRALAX [Concomitant]
     Active Substance: POLYETHYLENE GLYCOL 3350
  15. SENNA [Concomitant]
     Active Substance: SENNA LEAF\SENNOSIDES\SENNOSIDES A AND B
  16. LORAZEPAM [Concomitant]
     Active Substance: LORAZEPAM
  17. PHENOBARBITAL [Concomitant]
     Active Substance: PHENOBARBITAL
  18. ATROPINE OPHT DROP [Concomitant]
  19. MORPHINE CONCENTRATE [Concomitant]
  20. HALDOL [Concomitant]
     Active Substance: HALOPERIDOL

REACTIONS (1)
  - Pancreatic carcinoma metastatic [None]

NARRATIVE: CASE EVENT DATE: 20240508
